FAERS Safety Report 4358789-6 (Version None)
Quarter: 2004Q2

REPORT INFORMATION
  Report Type: 
  Country: None (occurrence: None)
  Receive Date: 20040511
  Receipt Date: 20040426
  Transmission Date: 20050107
  Serious: Yes (Death)
  Sender: FDA-Public Use
  Company Number: 190286

PATIENT
  Age: 62 Year
  Sex: Female

DRUGS (9)
  1. AVONEX [Suspect]
     Indication: MULTIPLE SCLEROSIS
     Dosage: 30 MCG QW IM
     Dates: start: 20020601, end: 20030701
  2. AVONEX [Suspect]
     Indication: MULTIPLE SCLEROSIS
     Dosage: 30 MCG QW IM
     Dates: start: 20030801, end: 20040101
  3. ZOLOFT [Concomitant]
  4. NEURONTIN [Concomitant]
  5. METOPROLOL [Concomitant]
  6. BEXTRA [Concomitant]
  7. ESTROGEN [Concomitant]
  8. FUROSEMIDE [Concomitant]
  9. HUMULIN [Concomitant]

REACTIONS (1)
  - INTERSTITIAL LUNG DISEASE [None]
